FAERS Safety Report 8922769 (Version 2)
Quarter: 2013Q1

REPORT INFORMATION
  Report Type: Spontaneous
  Country: US (occurrence: None)
  Receive Date: 20121115
  Receipt Date: 20130122
  Transmission Date: 20140127
  Serious: Yes (Other)
  Sender: FDA-Public Use
  Company Number: JPI-P-025412

PATIENT
  Age: 44 Year
  Sex: Female

DRUGS (8)
  1. XYREM [Suspect]
     Indication: NARCOLEPSY
     Dosage: (2.25 GM, 2 IN 1 D)
     Route: 048
     Dates: start: 20120815, end: 201208
  2. XYREM [Suspect]
     Indication: SOMNOLENCE
     Dosage: (2.25 GM, 2 IN 1 D)
     Route: 048
     Dates: start: 20120815, end: 201208
  3. NARCOTIC [Concomitant]
  4. FENTANYL [Concomitant]
  5. HYDROMORPHONE HYDROCHLORIDE [Concomitant]
  6. ZIPRASIDONE [Concomitant]
  7. LAMOTRIGINE [Concomitant]
  8. METOPROLOL SUCCINATE [Concomitant]

REACTIONS (14)
  - Pain [None]
  - Spinal fusion surgery [None]
  - Hip arthroplasty [None]
  - Nausea [None]
  - Headache [None]
  - Fatigue [None]
  - Feeling abnormal [None]
  - Crying [None]
  - Insomnia [None]
  - Somnolence [None]
  - Dysarthria [None]
  - Feeling drunk [None]
  - Initial insomnia [None]
  - Depressed mood [None]
